FAERS Safety Report 10037594 (Version 1)
Quarter: 2014Q1

REPORT INFORMATION
  Report Type: Spontaneous
  Country: US (occurrence: None)
  Receive Date: 20140324
  Receipt Date: 20140324
  Transmission Date: 20141002
  Serious: Yes (Hospitalization)
  Sender: FDA-Public Use
  Company Number: UTC-045925

PATIENT
  Age: 73 Year
  Sex: Male

DRUGS (12)
  1. TYVASO [Suspect]
     Indication: PULMONARY ARTERIAL HYPERTENSION
     Dosage: (54 MCG, 4 IN 1 D)
     Route: 055
     Dates: start: 20110505
  2. LETAIRIS (AMBRISENTAN) (TABLETS) [Concomitant]
  3. ACCUPRIL (QUINAPRIL HYDROCHLORIDE) [Concomitant]
  4. POTASSIUM (POTASSIUM) [Concomitant]
  5. MULTIVITAMIN (MULTIVITAMIN) [Concomitant]
  6. GLUCOSAMINE/CHONDRITIN (JORIX) [Concomitant]
  7. OMEGA 3 (FISH OIL) [Concomitant]
  8. LASIX (FUROSEMIDE) [Concomitant]
  9. PREDNISONE (PREDNISONE) [Concomitant]
  10. QVAR (BECLOMETASONE DIPROPIONATE) [Concomitant]
  11. ALBUTEROL (SALBUTAMOL) [Concomitant]
  12. SPIRIVA (TIOTROPIUM BROMIDE) [Concomitant]

REACTIONS (1)
  - Transfusion [None]
